FAERS Safety Report 8833492 (Version 2)
Quarter: 2012Q4

REPORT INFORMATION
  Report Type: 
  Country: US (occurrence: US)
  Receive Date: 20121010
  Receipt Date: 20121011
  Transmission Date: 20130627
  Serious: Yes (Death, Hospitalization)
  Sender: FDA-Public Use
  Company Number: US-ABBOTT-12P-163-0991863-00

PATIENT
  Age: 77 None
  Sex: Male
  Weight: 99.88 kg

DRUGS (1)
  1. ANDROGEL [Suspect]
     Indication: BLOOD TESTOSTERONE DECREASED
     Dosage: 5gm packets
     Route: 061

REACTIONS (6)
  - Hepatic cancer [Fatal]
  - Gastric cancer [Fatal]
  - Lung neoplasm malignant [Fatal]
  - Jaundice [Not Recovered/Not Resolved]
  - Cholelithiasis [Not Recovered/Not Resolved]
  - Abdominal pain lower [Recovered/Resolved]
